FAERS Safety Report 5028973-7 (Version None)
Quarter: 2006Q2

REPORT INFORMATION
  Report Type: 
  Country: None (occurrence: None)
  Receive Date: 20060619
  Receipt Date: 20050719
  Transmission Date: 20061013
  Serious: Yes (Hospitalization)
  Sender: FDA-Public Use
  Company Number: CA-SANOFI-SYNTHELABO-F01200501267

PATIENT
  Sex: Female

DRUGS (18)
  1. OXALIPLATIN [Suspect]
     Indication: COLON CANCER
     Dosage: 143MG 1 X PER 2 WEEK
     Route: 042
     Dates: start: 20050623, end: 20050623
  2. FOSAMAX [Concomitant]
     Dates: start: 20040615
  3. HYDROCHLOROTHIAZIDE [Concomitant]
     Dates: start: 20010615
  4. ELTROXIN [Concomitant]
     Dates: start: 20030615
  5. ARTHROTEC [Concomitant]
     Dates: start: 20030615
  6. PANTOPRAZOLE SODIUM [Concomitant]
     Dates: start: 20030615
  7. AVASTIN [Suspect]
     Dosage: 556MG Q2W
     Route: 042
     Dates: start: 20050623, end: 20050623
  8. LEUCOVORIN [Suspect]
     Dosage: 408 MG 1 X PER 2 WEEK
     Route: 042
     Dates: start: 20050623, end: 20050624
  9. DOMPERIDONE [Concomitant]
     Dates: start: 20040615
  10. DIOVAN [Concomitant]
     Dates: start: 20040615
  11. LASIX [Concomitant]
     Dates: start: 20050721
  12. MAXERAN [Concomitant]
     Dates: start: 20050721
  13. FLUOROURACIL [Suspect]
     Dosage: 660MG BOLUS AND 1224.5 MG INFUSION EVERY 2 WEEKS
     Route: 042
     Dates: start: 20050623, end: 20050624
  14. MEDICATION NOS [Concomitant]
     Dosage: UNK
     Route: 065
     Dates: start: 20050816, end: 20050818
  15. KENACOMB [Concomitant]
     Dosage: UNK
     Route: 065
     Dates: start: 20050814
  16. MOUTHWASH [Concomitant]
     Dosage: UNK
     Route: 065
     Dates: start: 20050721
  17. MAGNESIUM-ROUGIER [Concomitant]
     Dosage: UNK
     Route: 065
     Dates: start: 20050721
  18. POTASSIUM [Concomitant]
     Dosage: UNK
     Route: 065
     Dates: start: 20050721

REACTIONS (5)
  - ABDOMINAL ABSCESS [None]
  - HYPOCALCAEMIA [None]
  - HYPOKALAEMIA [None]
  - HYPOMAGNESAEMIA [None]
  - INTESTINAL PERFORATION [None]
